FAERS Safety Report 10619285 (Version 1)
Quarter: 2014Q4

REPORT INFORMATION
  Report Type: Spontaneous
  Country: US (occurrence: US)
  Receive Date: 20141202
  Receipt Date: 20141202
  Transmission Date: 20150529
  Serious: Yes (Other)
  Sender: FDA-Public Use
  Company Number: US-SA-2014SA163176

PATIENT
  Sex: Female

DRUGS (1)
  1. PLAVIX [Suspect]
     Active Substance: CLOPIDOGREL BISULFATE
     Indication: STENT PLACEMENT
     Route: 065

REACTIONS (3)
  - Macular degeneration [Not Recovered/Not Resolved]
  - Dysarthria [Not Recovered/Not Resolved]
  - Visual impairment [Not Recovered/Not Resolved]
